FAERS Safety Report 9501263 (Version 1)
Quarter: 2013Q1

REPORT INFORMATION
  Report Type: Spontaneous
  Country: US (occurrence: None)
  Receive Date: 20130118
  Receipt Date: 20130118
  Transmission Date: 20140127
  Serious: Yes (Hospitalization)
  Sender: FDA-Public Use
  Company Number: A-US2012-64896

PATIENT
  Age: 47 Year
  Sex: Female

DRUGS (3)
  1. TRACLEER [Suspect]
     Indication: PULMONARY ARTERIAL HYPERTENSION
     Route: 048
     Dates: start: 20111020
  2. ASPIRIN (ACETYLSALICYLIC ACID) [Concomitant]
  3. CELLCEPT (MYCOPHENOLATE MOFETIL) [Concomitant]

REACTIONS (2)
  - Swelling [None]
  - Weight increased [None]
